FAERS Safety Report 5785612-5 (Version None)
Quarter: 2008Q2

REPORT INFORMATION
  Report Type: 
  Country: None (occurrence: None)
  Receive Date: 20080620
  Receipt Date: 20080620
  Transmission Date: 20081010
  Serious: Yes (Other)
  Sender: FDA-Public Use
  Company Number: None

PATIENT
  Sex: Female
  Weight: 57.1532 kg

DRUGS (1)
  1. SINGULAIR [Suspect]
     Indication: RHINITIS ALLERGIC
     Dosage: 10 MG 1 QD PO
     Route: 048
     Dates: start: 20030307, end: 20030507

REACTIONS (3)
  - AMNESIA [None]
  - CLUMSINESS [None]
  - DISTURBANCE IN ATTENTION [None]
